FAERS Safety Report 18086775 (Version 1)
Quarter: 2020Q3

REPORT INFORMATION
  Report Type: Spontaneous
  Country: US (occurrence: US)
  Receive Date: 20200729
  Receipt Date: 20200729
  Transmission Date: 20201103
  Serious: No
  Sender: FDA-Public Use
  Company Number: US-PFIZER INC-2020286751

PATIENT
  Age: 76 Year
  Sex: Female

DRUGS (13)
  1. PROCHLORPERAZINE EDISYLATE. [Suspect]
     Active Substance: PROCHLORPERAZINE EDISYLATE
     Dosage: UNK
  2. PREDNISONE. [Suspect]
     Active Substance: PREDNISONE
     Dosage: UNK
  3. PROCHLORPERAZINE. [Suspect]
     Active Substance: PROCHLORPERAZINE
     Dosage: UNK
  4. TOLMETIN [Suspect]
     Active Substance: TOLMETIN
     Dosage: UNK
  5. CELECOXIB. [Suspect]
     Active Substance: CELECOXIB
     Dosage: UNK
  6. MORPHINE SULFATE. [Suspect]
     Active Substance: MORPHINE SULFATE
     Dosage: UNK
  7. PREDNISOLONE ACETATE. [Suspect]
     Active Substance: PREDNISOLONE ACETATE
     Dosage: UNK
  8. OXCARBAZEPINE. [Suspect]
     Active Substance: OXCARBAZEPINE
     Dosage: UNK
  9. FENOPROFEN CALCIUM. [Suspect]
     Active Substance: FENOPROFEN CALCIUM
     Dosage: UNK
  10. LITHIUM. [Suspect]
     Active Substance: LITHIUM
     Dosage: UNK
  11. SULFASALAZINE. [Suspect]
     Active Substance: SULFASALAZINE
     Dosage: UNK
  12. NAPROXEN SODIUM. [Suspect]
     Active Substance: NAPROXEN SODIUM
     Dosage: UNK
  13. CODEINE [Suspect]
     Active Substance: CODEINE
     Dosage: UNK

REACTIONS (1)
  - Drug hypersensitivity [Unknown]
